FAERS Safety Report 7480599-1 (Version None)
Quarter: 2011Q2

REPORT INFORMATION
  Report Type: 
  Country: None (occurrence: None)
  Receive Date: 20110516
  Receipt Date: 20110509
  Transmission Date: 20111010
  Serious: Yes (Death)
  Sender: FDA-Public Use
  Company Number: TR-ASTELLAS-2011EU002668

PATIENT
  Age: 55 Year
  Sex: Male

DRUGS (3)
  1. AZATHIOPRINE [Suspect]
     Indication: RENAL TRANSPLANT
     Dosage: 75 MG, UNKNOWN/D
     Route: 065
     Dates: end: 20020101
  2. PREDNISOLONE [Suspect]
     Indication: RENAL TRANSPLANT
     Dosage: 7.5 MG, UNKNOWN/D
     Route: 065
     Dates: end: 20020101
  3. TACROLIMUS [Suspect]
     Indication: RENAL TRANSPLANT
     Dosage: 3 MG, UNKNOWN/D
     Route: 065
     Dates: end: 20020101

REACTIONS (3)
  - CEREBROVASCULAR ACCIDENT [None]
  - BRAIN DEATH [None]
  - ORGAN DONOR [None]
